FAERS Safety Report 10483805 (Version 1)
Quarter: 2014Q3

REPORT INFORMATION
  Report Type: Spontaneous
  Country: US (occurrence: US)
  Receive Date: 20140930
  Receipt Date: 20140930
  Transmission Date: 20150326
  Serious: Yes (Other)
  Sender: FDA-Public Use
  Company Number: 2014SP005551

PATIENT
  Sex: Female

DRUGS (6)
  1. GEMCITABINE [Suspect]
     Active Substance: GEMCITABINE\GEMCITABINE HYDROCHLORIDE
     Indication: LEIOMYOSARCOMA
  2. DACARBAZINE. [Suspect]
     Active Substance: DACARBAZINE
     Indication: LEIOMYOSARCOMA
  3. DOXORUBICIN [Suspect]
     Active Substance: DOXORUBICIN
     Indication: LEIOMYOSARCOMA
  4. IFOSFAMIDE. [Suspect]
     Active Substance: IFOSFAMIDE
     Indication: LEIOMYOSARCOMA
  5. INLYTA [Concomitant]
     Active Substance: AXITINIB
     Indication: LEIOMYOSARCOMA
  6. DOCETAXEL [Suspect]
     Active Substance: DOCETAXEL
     Indication: LEIOMYOSARCOMA

REACTIONS (1)
  - Therapeutic product ineffective for unapproved indication [Unknown]
